FAERS Safety Report 8159015-2 (Version None)
Quarter: 2012Q1

REPORT INFORMATION
  Report Type: 
  Country: None (occurrence: None)
  Receive Date: 20120103
  Receipt Date: 20110911
  Transmission Date: 20120608
  Serious: No
  Sender: FDA-Public Use
  Company Number: AE-2011-001455

PATIENT
  Sex: Male

DRUGS (4)
  1. PEGASYS [Concomitant]
  2. INCIVEK [Suspect]
     Dosage: 2250 MG (750 MG, 1 IN 8 HR), ORAL
     Route: 048
     Dates: start: 20110812
  3. RIVAVIRIN  (RIBAVIRIN) [Concomitant]
  4. MILK THISTLE (PLANT ALKALOIDS AND OTHER NATURAL PRODUCTS) [Concomitant]

REACTIONS (4)
  - SOMNOLENCE [None]
  - VOMITING [None]
  - SLEEP DISORDER [None]
  - ABDOMINAL DISCOMFORT [None]
